FAERS Safety Report 19509385 (Version 2)
Quarter: 2021Q3

REPORT INFORMATION
  Report Type: Report from Study
  Country: US (occurrence: US)
  Receive Date: 20210709
  Receipt Date: 20210804
  Transmission Date: 20211014
  Serious: No
  Sender: FDA-Public Use
  Company Number: NVSC2021US145336

PATIENT
  Sex: Female

DRUGS (2)
  1. COSENTYX [Suspect]
     Active Substance: SECUKINUMAB
     Dosage: 300 MG, Q4W (ONCE EVERY 4 WEEKS)
     Route: 058
     Dates: start: 20210420
  2. COSENTYX [Suspect]
     Active Substance: SECUKINUMAB
     Indication: PSORIASIS
     Dosage: 300 MG, QW (ONCE WEEKLY FOR 5 WEEKS)
     Route: 058
     Dates: start: 20210420

REACTIONS (5)
  - Insomnia [Recovering/Resolving]
  - Pruritus [Unknown]
  - Therapeutic response shortened [Unknown]
  - Back pain [Unknown]
  - Fatigue [Unknown]
